FAERS Safety Report 6919038-5 (Version None)
Quarter: 2010Q3

REPORT INFORMATION
  Report Type: 
  Country: None (occurrence: None)
  Receive Date: 20100811
  Receipt Date: 20100804
  Transmission Date: 20110219
  Serious: Yes (Hospitalization)
  Sender: FDA-Public Use
  Company Number: US-B.I. PHARMACEUTICALS,INC./RIDGEFIELD-2010-BP-08115BP

PATIENT
  Age: 57 Year
  Sex: Male

DRUGS (4)
  1. FLOMAX [Suspect]
     Indication: DYSURIA
     Dosage: 0.4 MG
     Route: 048
     Dates: start: 20100113, end: 20100115
  2. FLOMAX [Suspect]
     Indication: PROSTATOMEGALY
  3. METOPROLOL [Concomitant]
     Indication: HYPERTENSION
  4. LIPITOR [Concomitant]
     Indication: BLOOD CHOLESTEROL INCREASED

REACTIONS (4)
  - ERECTILE DYSFUNCTION [None]
  - NAUSEA [None]
  - RENAL FAILURE [None]
  - SYNCOPE [None]
